FAERS Safety Report 22284512 (Version 2)
Quarter: 2023Q2

REPORT INFORMATION
  Report Type: Spontaneous
  Country: US (occurrence: US)
  Receive Date: 20230504
  Receipt Date: 20230509
  Transmission Date: 20230722
  Serious: Yes (Hospitalization, Other)
  Sender: FDA-Public Use
  Company Number: US-PFIZER INC-PV202300079633

PATIENT
  Age: 51 Year
  Sex: Female

DRUGS (1)
  1. XELJANZ [Suspect]
     Active Substance: TOFACITINIB CITRATE
     Dosage: UNK

REACTIONS (12)
  - Cardiac rehabilitation therapy [Unknown]
  - Rehabilitation therapy [Unknown]
  - Intussusception [Unknown]
  - Oral surgery [Unknown]
  - Neuropathy peripheral [Unknown]
  - Pneumonia staphylococcal [Unknown]
  - Cardiac failure congestive [Unknown]
  - Rheumatoid arthritis [Unknown]
  - Joint injury [Unknown]
  - Headache [Not Recovered/Not Resolved]
  - Temporomandibular joint syndrome [Unknown]
  - Arthritis [Unknown]
